FAERS Safety Report 8770493 (Version 1)
Quarter: 2012Q4

REPORT INFORMATION
  Report Type: 
  Country: CH (occurrence: CH)
  Receive Date: 20120906
  Receipt Date: 20120906
  Transmission Date: 20130627
  Serious: Yes (Hospitalization)
  Sender: FDA-Public Use
  Company Number: CH-PFIZER INC-2012217151

PATIENT
  Age: 66 Year
  Sex: Female

DRUGS (5)
  1. SORTIS [Suspect]
     Indication: HYPERLIPIDAEMIA
     Dosage: 10 mg, once daily in the evening
     Route: 048
     Dates: end: 201204
  2. LAMICTAL [Suspect]
     Indication: GRAND MAL CONVULSION
     Dosage: 100 mg, 2x/day
     Route: 048
     Dates: start: 201005, end: 201204
  3. LAMICTAL [Suspect]
     Indication: EPILEPSY
  4. EZETROL [Suspect]
     Indication: HYPERLIPIDAEMIA
     Dosage: 10 mg, once daily in the morning
     Route: 048
     Dates: end: 201204
  5. CEDUR [Suspect]
     Indication: HYPERLIPIDAEMIA
     Dosage: 400 mg, once daily in the morning
     Route: 048
     Dates: end: 201204

REACTIONS (3)
  - Liver injury [Recovering/Resolving]
  - Jaundice [Recovering/Resolving]
  - Transaminases increased [None]
